FAERS Safety Report 16613953 (Version 1)
Quarter: 2019Q3

REPORT INFORMATION
  Report Type: Spontaneous
  Country: US (occurrence: US)
  Receive Date: 20190723
  Receipt Date: 20190723
  Transmission Date: 20191004
  Serious: No
  Sender: FDA-Public Use
  Company Number: US-ALK-ABELLO A/S-2019AA002373

PATIENT

DRUGS (60)
  1. DAE BULK 163 (PINUS STROBUS) [Suspect]
     Active Substance: PINUS STROBUS POLLEN
     Indication: PRODUCT USED FOR UNKNOWN INDICATION
     Dosage: UNK
     Dates: start: 20190626, end: 20190626
  2. DAE BULK 223 (LOLIUM PERENNE) [Suspect]
     Active Substance: LOLIUM PERENNE POLLEN
     Indication: PRODUCT USED FOR UNKNOWN INDICATION
     Dosage: UNK
     Dates: start: 20190626, end: 20190626
  3. DAE BULK 239 (SORGHUM HALEPENSE) [Suspect]
     Active Substance: SORGHUM HALEPENSE POLLEN
     Indication: PRODUCT USED FOR UNKNOWN INDICATION
     Dosage: UNK
     Dates: start: 20190626, end: 20190626
  4. DAE BULK 1327 (MUCOR PLUMBUS) [Suspect]
     Active Substance: MUCOR PLUMBEUS
     Indication: PRODUCT USED FOR UNKNOWN INDICATION
     Dosage: UNK
     Dates: start: 20190626, end: 20190626
  5. DAE BULK 156 (ULMUS AMERICANA) [Suspect]
     Active Substance: ULMUS AMERICANA POLLEN
     Indication: PRODUCT USED FOR UNKNOWN INDICATION
     Dosage: UNK
     Dates: start: 20190626, end: 20190626
  6. DAE BULK 166 (PROSOPIS SPP.) [Suspect]
     Active Substance: PROSOPIS JULIFLORA POLLEN
     Indication: PRODUCT USED FOR UNKNOWN INDICATION
     Dosage: UNK
     Dates: start: 20190626, end: 20190626
  7. DAE BULK 351 (TARAXACUM VULGARE) [Suspect]
     Active Substance: TARAXACUM OFFICINALE POLLEN
  8. DAE BULK 225 (PHLEUM PRATENSE) [Suspect]
     Active Substance: PHLEUM PRATENSE POLLEN
     Indication: PRODUCT USED FOR UNKNOWN INDICATION
     Dosage: UNK
     Dates: start: 20190626, end: 20190626
  9. DAE BULK 228 (POA PRATENSIS) [Suspect]
     Active Substance: POA PRATENSIS POLLEN
     Indication: PRODUCT USED FOR UNKNOWN INDICATION
     Dosage: UNK
     Dates: start: 20190626, end: 20190626
  10. DAE BULK 233 (TRITICUM AESTIVUM) [Suspect]
     Active Substance: TRITICUM AESTIVUM POLLEN
     Indication: PRODUCT USED FOR UNKNOWN INDICATION
     Dosage: UNK
     Dates: start: 20190626, end: 20190626
  11. DAE BULK 240 (PASPALUM NOTATUM) [Suspect]
     Active Substance: PASPALUM NOTATUM POLLEN
     Indication: PRODUCT USED FOR UNKNOWN INDICATION
     Dosage: UNK
     Dates: start: 20190626, end: 20190626
  12. DAE BULK 556 (BOS TAURUS) [Suspect]
     Active Substance: BOS TAURUS SKIN
     Indication: PRODUCT USED FOR UNKNOWN INDICATION
     Dosage: UNK
     Dates: start: 20190626, end: 20190626
  13. DAE BULK 419 (FUSARIUM ROSEUM) [Suspect]
     Active Substance: GIBBERELLA ZEAE
     Indication: PRODUCT USED FOR UNKNOWN INDICATION
     Dosage: UNK
     Dates: start: 20190626, end: 20190626
  14. DAE BULK 411 (AUREOBASIDIUM PULLULANS) [Suspect]
     Active Substance: AUREOBASIDIUM PULLULANS VAR. PULLUTANS
     Indication: PRODUCT USED FOR UNKNOWN INDICATION
     Dosage: UNK
     Dates: start: 20190626, end: 20190626
  15. DAE BULK 1324 (DRECHSLERA SOROKINIANA) [Suspect]
     Active Substance: COCHLIOBOLUS SATIVUS
     Indication: PRODUCT USED FOR UNKNOWN INDICATION
     Dosage: UNK
     Dates: start: 20190626, end: 20190626
  16. DAE BULK 405 (ASPERGILLUS FUMIGATUS) [Suspect]
     Active Substance: ASPERGILLUS FUMIGATUS
     Indication: PRODUCT USED FOR UNKNOWN INDICATION
     Dosage: UNK
     Dates: start: 20190626, end: 20190626
  17. DAE BULK 1143 (BETULA NIGRA) [Suspect]
     Active Substance: BETULA NIGRA POLLEN
     Indication: PRODUCT USED FOR UNKNOWN INDICATION
     Dosage: UNK
     Dates: start: 20190626, end: 20190626
  18. DAE BULK 1146 (CELTIS OCCIDENTALIS) [Suspect]
     Active Substance: CELTIS OCCIDENTALIS POLLEN
     Indication: PRODUCT USED FOR UNKNOWN INDICATION
     Dosage: UNK
     Dates: start: 20190626, end: 20190626
  19. DAE BULK 1144 (CARYA OVATA) [Suspect]
     Active Substance: CARYA OVATA POLLEN
     Indication: PRODUCT USED FOR UNKNOWN INDICATION
     Dosage: UNK
     Dates: start: 20190626, end: 20190626
  20. DAE BULK 1175 (SALIX NIGRA) [Suspect]
     Active Substance: SALIX NIGRA POLLEN
     Indication: PRODUCT USED FOR UNKNOWN INDICATION
     Dosage: UNK
     Dates: start: 20190626, end: 20190626
  21. DAE BULK 1319 (RUMEX ACETOSELLA POLLEN\RUMEX CRISPUS POLLEN) [Suspect]
     Active Substance: RUMEX ACETOSELLA POLLEN\RUMEX CRISPUS POLLEN
     Indication: PRODUCT USED FOR UNKNOWN INDICATION
     Dosage: UNK
     Dates: start: 20190626, end: 20190626
  22. DAE BULK 157 (ACER NEGUNDO) [Suspect]
     Active Substance: ACER NEGUNDO POLLEN
     Indication: PRODUCT USED FOR UNKNOWN INDICATION
     Dosage: UNK
     Dates: start: 20190626, end: 20190626
  23. DAE BULK 158 (POPULUS DELTOIDS) [Suspect]
     Active Substance: POPULUS DELTOIDES POLLEN
     Indication: PRODUCT USED FOR UNKNOWN INDICATION
     Dosage: UNK
     Dates: start: 20190626, end: 20190626
  24. DAE BULK 302 (AMBROSIA ARTEMISIIFOLIA) [Suspect]
     Active Substance: AMBROSIA ARTEMISIIFOLIA POLLEN
     Indication: PRODUCT USED FOR UNKNOWN INDICATION
     Dosage: UNK
     Dates: start: 20190626, end: 20190626
  25. DAE BULK 1208 (SOLIDAGO CANADENSIS) [Suspect]
     Active Substance: SOLIDAGO CANADENSIS POLLEN
     Indication: PRODUCT USED FOR UNKNOWN INDICATION
     Dosage: UNK
     Dates: start: 20190626, end: 20190626
  26. DAE BULK 238 (CYNODON DACTYLON) [Suspect]
     Active Substance: CYNODON DACTYLON POLLEN
     Indication: PRODUCT USED FOR UNKNOWN INDICATION
     Dosage: UNK
     Dates: start: 20190626, end: 20190626
  27. DAE BULK 555 (FELIS DOMESTICUS) [Suspect]
     Active Substance: FELIS CATUS HAIR
     Indication: PRODUCT USED FOR UNKNOWN INDICATION
     Dosage: UNK
     Dates: start: 20190626, end: 20190626
  28. DAE BULK 800 (SOLENOPSIS INVICTA) [Suspect]
     Active Substance: SOLENOPSIS INVICTA
     Indication: PRODUCT USED FOR UNKNOWN INDICATION
     Dosage: UNK
     Dates: start: 20190626, end: 20190626
  29. DAE BULK 1317 (USTILAGO AVENAE\USTILAGO MAYDIS\USTILAGO TRITICI) [Suspect]
     Active Substance: USTILAGO AVENAE\USTILAGO MAYDIS\USTILAGO TRITICI
     Indication: PRODUCT USED FOR UNKNOWN INDICATION
     Dosage: UNK
     Dates: start: 20190626, end: 20190626
  30. DAE BULK 168 (FRAXINUS AMERICANA) [Suspect]
     Active Substance: FRAXINUS AMERICANA POLLEN
     Indication: PRODUCT USED FOR UNKNOWN INDICATION
     Dosage: UNK
     Dates: start: 20190626, end: 20190626
  31. DAE BULK 1268 (CARYA ILLINOENSIS) [Suspect]
     Active Substance: CARYA ILLINOINENSIS POLLEN
     Indication: PRODUCT USED FOR UNKNOWN INDICATION
     Dosage: UNK
     Dates: start: 20190626, end: 20190626
  32. DAE BULK 1199 (ARTEMISIA TRIDENTATA) [Suspect]
     Active Substance: ARTEMISIA TRIDENTATA POLLEN
     Indication: PRODUCT USED FOR UNKNOWN INDICATION
     Dosage: UNK
     Dates: start: 20190626, end: 20190626
  33. DAE BULK 552 (EQUUS CABALLUS) [Suspect]
     Active Substance: EQUUS CABALLUS SKIN
     Indication: PRODUCT USED FOR UNKNOWN INDICATION
     Dosage: UNK
     Dates: start: 20190626, end: 20190626
  34. DAE BULK 553 (CANIS LUPUS FAMILIARIS) [Suspect]
     Active Substance: CANIS LUPUS FAMILIARIS SKIN
     Indication: PRODUCT USED FOR UNKNOWN INDICATION
     Dosage: UNK
     Dates: start: 20190626, end: 20190626
  35. DAE BULK 402 (ALTERNARIA ALTERNATA) [Suspect]
     Active Substance: ALTERNARIA ALTERNATA
     Indication: PRODUCT USED FOR UNKNOWN INDICATION
     Dosage: UNK
     Dates: start: 20190626, end: 20190626
  36. HISTATROL [Suspect]
     Active Substance: HISTAMINE PHOSPHATE
     Indication: PRODUCT USED FOR UNKNOWN INDICATION
     Dosage: UNK
     Dates: start: 20190626, end: 20190626
  37. DAE BULK 1161 (MORUS RUBRA) [Suspect]
     Active Substance: MORUS RUBRA POLLEN
     Indication: PRODUCT USED FOR UNKNOWN INDICATION
     Dosage: UNK
     Dates: start: 20190626, end: 20190626
  38. DAE BULK 510 (DERMATOPHAGOIDES FARINAE\DERMATOPHAGOIDES PTERONYSSINUS) [Suspect]
     Active Substance: DERMATOPHAGOIDES FARINAE\DERMATOPHAGOIDES PTERONYSSINUS
     Indication: PRODUCT USED FOR UNKNOWN INDICATION
     Dosage: UNK
     Dates: start: 20190626, end: 20190626
  39. IVA XANTHIFOLIA POLLEN [Suspect]
     Active Substance: CYCLACHAENA XANTHIFOLIA POLLEN
     Indication: PRODUCT USED FOR UNKNOWN INDICATION
     Dosage: UNK
     Dates: start: 20190626, end: 20190626
  40. DAE BULK 342 (PLANTAGO LANCEOLATA) [Suspect]
     Active Substance: PLANTAGO LANCEOLATA POLLEN
     Indication: PRODUCT USED FOR UNKNOWN INDICATION
     Dosage: UNK
     Dates: start: 20190626, end: 20190626
  41. DAE BULK 208 (AVENA SATIVA) [Suspect]
     Active Substance: AVENA SATIVA POLLEN
     Indication: PRODUCT USED FOR UNKNOWN INDICATION
     Dosage: UNK
     Dates: start: 20190626, end: 20190626
  42. DAE BULK 554 (ORYCTOLAGUS CUNICULUS DOMESTICA) [Suspect]
     Active Substance: ORYCTOLAGUS CUNICULUS SKIN
     Indication: PRODUCT USED FOR UNKNOWN INDICATION
     Dosage: UNK
     Dates: start: 20190626, end: 20190626
  43. PENICILLIUM NOTATUM [Suspect]
     Active Substance: PENICILLIUM CHRYSOGENUM VAR. CHRYSOGENUM
     Indication: PRODUCT USED FOR UNKNOWN INDICATION
     Dosage: UNK
     Dates: start: 20190626, end: 20190626
  44. DAE BULK 416 (CLADOSPORIUM CLADOSPORIOIDES) [Suspect]
     Active Substance: CLADOSPORIUM CLADOSPORIOIDES
     Indication: PRODUCT USED FOR UNKNOWN INDICATION
     Dosage: UNK
     Dates: start: 20190626, end: 20190626
  45. DAE BULK 1174 (QUERCUS VIRGINIANA) [Suspect]
     Active Substance: QUERCUS VIRGINIANA POLLEN
     Indication: PRODUCT USED FOR UNKNOWN INDICATION
     Dosage: UNK
     Dates: start: 20190626, end: 20190626
  46. DAE BULK 1166 (PLATANUS OCCIDENTALIS) [Suspect]
     Active Substance: PLATANUS OCCIDENTALIS POLLEN
     Indication: PRODUCT USED FOR UNKNOWN INDICATION
     Dosage: UNK
     Dates: start: 20190626, end: 20190626
  47. DAE BULK 1179 (TAXODIUM DISTICHUM) [Suspect]
     Active Substance: TAXODIUM DISTICHUM POLLEN
     Indication: PRODUCT USED FOR UNKNOWN INDICATION
     Dosage: UNK
     Dates: start: 20190626, end: 20190626
  48. DAE BULK 362 (AMARANTHUS RETROFLEXUS) [Suspect]
     Active Substance: AMARANTHUS RETROFLEXUS POLLEN
     Indication: PRODUCT USED FOR UNKNOWN INDICATION
     Dosage: UNK
     Dates: start: 20190626, end: 20190626
  49. DAE BULK 356 (URTICA DIOICA) [Suspect]
     Active Substance: URTICA DIOICA POLLEN
     Indication: PRODUCT USED FOR UNKNOWN INDICATION
     Dosage: UNK
     Dates: start: 20190626, end: 20190626
  50. DAE BULK 364 (XANTHIUM COMMUNE) [Suspect]
     Active Substance: XANTHIUM STRUMARIUM POLLEN
     Indication: PRODUCT USED FOR UNKNOWN INDICATION
     Dosage: UNK
     Dates: start: 20190626, end: 20190626
  51. DAE BULK 322 (CHENOPODIUM ALBUM) [Suspect]
     Active Substance: CHENOPODIUM ALBUM POLLEN
     Indication: PRODUCT USED FOR UNKNOWN INDICATION
     Dosage: UNK
     Dates: start: 20190626, end: 20190626
  52. DAE BULK 265 (521 ANAS SPP.\522 ANSER SPP.\523 GALLUS SPP.) [Suspect]
     Active Substance: ANAS PLATYRHYNCHOS FEATHER\ANSER ANSER FEATHER\GALLUS GALLUS FEATHER
     Indication: PRODUCT USED FOR UNKNOWN INDICATION
     Dosage: UNK
     Dates: start: 20190626, end: 20190626
  53. DAE BULK 1276 (BLATTELLA GERMANICA\PERIPLANETA AMERICANA) [Suspect]
     Active Substance: BLATTELLA GERMANICA\PERIPLANETA AMERICANA
     Indication: PRODUCT USED FOR UNKNOWN INDICATION
     Dosage: UNK
     Dates: start: 20190626, end: 20190626
  54. DAE BULK 558 (MUS MUSCULUS) [Suspect]
     Active Substance: MUS MUSCULUS SKIN
     Indication: PRODUCT USED FOR UNKNOWN INDICATION
     Dosage: UNK
     Dates: start: 20190626, end: 20190626
  55. DAE BULK 1323 (CURVULARIA INAEQUALIS) [Suspect]
     Active Substance: CURVULARIA INAEQUALIS
     Indication: PRODUCT USED FOR UNKNOWN INDICATION
     Dosage: UNK
     Dates: start: 20190626, end: 20190626
  56. STERILE DILUENT FOR ALLERGENIC EXTRACT NOS [Suspect]
     Active Substance: ALBUMIN HUMAN OR GLYCERIN OR PHENOL
     Indication: PRODUCT USED FOR UNKNOWN INDICATION
     Dosage: UNK
     Dates: start: 20190626, end: 20190626
  57. DAE BULK 1152 (JUNIPERUS ASCHEI) [Suspect]
     Active Substance: JUNIPERUS ASHEI POLLEN
     Indication: PRODUCT USED FOR UNKNOWN INDICATION
     Dosage: UNK
     Dates: start: 20190626, end: 20190626
  58. DAE BULK 1173 (QUERCUS RUBRA) [Suspect]
     Active Substance: QUERCUS RUBRA POLLEN
     Indication: PRODUCT USED FOR UNKNOWN INDICATION
  59. DAE BULK 235 (ZEA MAYS) [Suspect]
     Active Substance: ZEA MAYS POLLEN
     Indication: PRODUCT USED FOR UNKNOWN INDICATION
     Dosage: UNK
     Dates: start: 20190626, end: 20190626
  60. RHIZOPUS NIGRICANS [Suspect]
     Active Substance: RHIZOPUS STOLONIFER
     Indication: PRODUCT USED FOR UNKNOWN INDICATION
     Dosage: UNK
     Dates: start: 20190626, end: 20190626

REACTIONS (2)
  - Throat irritation [Recovered/Resolved]
  - Cough [Recovered/Resolved]

NARRATIVE: CASE EVENT DATE: 20190626
